FAERS Safety Report 24005287 (Version 1)
Quarter: 2024Q2

REPORT INFORMATION
  Report Type: Spontaneous
  Country: CN (occurrence: CN)
  Receive Date: 20240624
  Receipt Date: 20240624
  Transmission Date: 20240715
  Serious: Yes (Death, Hospitalization)
  Sender: FDA-Public Use
  Company Number: CN-002147023-NVSC2024CN130052

PATIENT
  Age: 87 Year
  Sex: Female

DRUGS (2)
  1. CARBAMAZEPINE [Suspect]
     Active Substance: CARBAMAZEPINE
     Indication: Suicide attempt
     Dosage: 10 TABLETS OF CARBAMAZEPINE (200 MG PER TABLET)
     Route: 065
  2. ESTAZOLAM [Suspect]
     Active Substance: ESTAZOLAM
     Indication: Suicide attempt
     Dosage: 15 TABLETS OF ESTAZOLAM (1 MG PER TABLET)
     Route: 065

REACTIONS (4)
  - Cardiac arrest [Fatal]
  - Intentional overdose [Fatal]
  - Completed suicide [Fatal]
  - Product use in unapproved indication [Unknown]
